FAERS Safety Report 19360572 (Version 1)
Quarter: 2021Q2

REPORT INFORMATION
  Report Type: Report from Study
  Country: None (occurrence: US)
  Receive Date: 20210602
  Receipt Date: 20210602
  Transmission Date: 20210717
  Serious: Yes (Death, Hospitalization)
  Sender: FDA-Public Use
  Company Number: US-MDD US OPERATIONS-MDD202010-002086

PATIENT
  Age: 71 Year
  Sex: Female

DRUGS (15)
  1. APOKYN [Suspect]
     Active Substance: APOMORPHINE HYDROCHLORIDE
     Route: 058
     Dates: start: 20201019, end: 202012
  2. SINEMET [Concomitant]
     Active Substance: CARBIDOPA\LEVODOPA
     Dosage: 25MG?100MG
  3. ELIQUIS [Concomitant]
     Active Substance: APIXABAN
     Dosage: NOT PROVIDED
  4. ALEVE [Concomitant]
     Active Substance: NAPROXEN SODIUM
     Dosage: NOT PROVIDED
  5. OMEPRAZOLE. [Concomitant]
     Active Substance: OMEPRAZOLE
     Dosage: NOT PROVIDED
  6. APOKYN [Suspect]
     Active Substance: APOMORPHINE HYDROCHLORIDE
     Indication: PARKINSON^S DISEASE
     Route: 058
     Dates: start: 20201012, end: 202012
  7. AMANTADINE. [Concomitant]
     Active Substance: AMANTADINE HYDROCHLORIDE
     Dosage: NOT PROVIDED
  8. APOKYN [Suspect]
     Active Substance: APOMORPHINE HYDROCHLORIDE
     Dosage: MAXIMUM RECOMMENDED DOSE OF 0.6 ML
     Route: 058
     Dates: end: 202012
  9. APOKYN [Suspect]
     Active Substance: APOMORPHINE HYDROCHLORIDE
     Dosage: TITRATE BY 0.1 ML EVERY FEW DAYS UP TO EFFECTIVE MAXIMUM RECOMMENDED DOSE OF 0.6 ML
     Route: 058
     Dates: end: 202012
  10. MIRALAX [Concomitant]
     Active Substance: POLYETHYLENE GLYCOL 3350
  11. VOLTAREN [Concomitant]
     Active Substance: DICLOFENAC SODIUM
     Indication: ARTHRITIS
     Dosage: NOT PROVIDED
  12. PRAMIPEXOLE DIHYDROCHLORIDE. [Concomitant]
     Active Substance: PRAMIPEXOLE DIHYDROCHLORIDE
     Dosage: NOT PROVIDED
  13. AMANTADINE. [Concomitant]
     Active Substance: AMANTADINE HYDROCHLORIDE
     Dosage: NOT PROVIDED
  14. SOLIFENACIN SUCCINATE. [Concomitant]
     Active Substance: SOLIFENACIN SUCCINATE
     Dosage: NOT PROVIDED
  15. METOPROLOL SUCCINATE. [Concomitant]
     Active Substance: METOPROLOL SUCCINATE
     Dosage: NOT PROVIDED

REACTIONS (4)
  - Sluggishness [Unknown]
  - Tremor [Unknown]
  - Somnolence [Unknown]
  - Blood pressure fluctuation [Unknown]

NARRATIVE: CASE EVENT DATE: 20201014
